FAERS Safety Report 5519198-7 (Version None)
Quarter: 2007Q4

REPORT INFORMATION
  Report Type: 
  Country: None (occurrence: None)
  Receive Date: 20071116
  Receipt Date: 20071112
  Transmission Date: 20080405
  Serious: Yes (Other)
  Sender: FDA-Public Use
  Company Number: PHEH2007US14073

PATIENT
  Age: 63 Year
  Sex: Male
  Weight: 145.12 kg

DRUGS (4)
  1. DIOVAN [Suspect]
     Indication: HYPERTENSION
     Dosage: UNK, UNK
     Route: 048
     Dates: start: 20030101
  2. ZESTRIL [Concomitant]
     Dosage: 20 MG, UNK
  3. CITALOPRAM HYDROBROMIDE [Concomitant]
  4. MELOXICAM [Concomitant]

REACTIONS (4)
  - BIOPSY BONE MARROW ABNORMAL [None]
  - FATIGUE [None]
  - LEUKAEMIA [None]
  - WHITE BLOOD CELL COUNT INCREASED [None]
